FAERS Safety Report 6718574-4 (Version None)
Quarter: 2010Q2

REPORT INFORMATION
  Report Type: 
  Country: None (occurrence: None)
  Receive Date: 20100504
  Receipt Date: 20100419
  Transmission Date: 20101027
  Serious: Yes (Other)
  Sender: FDA-Public Use
  Company Number: 1-22309929

PATIENT
  Age: 52 Year
  Sex: Female
  Weight: 76.8393 kg

DRUGS (4)
  1. WARFARIN SODIUM [Suspect]
     Indication: PULMONARY EMBOLISM
     Dosage: 52.5 MG/WEEK (SEE B.5), ORAL
     Route: 048
  2. BOSENTAN [Suspect]
     Indication: PULMONARY HYPERTENSION
     Dosage: 62.5 MG BID (SEE B.5), ORAL
     Route: 048
  3. TELMISARTAN/HYDROCHLOROTHIAZIDE [Concomitant]
  4. DAILY MULTIVITAMIN (WHICH CONTAINED NO VITAMIN K) [Concomitant]

REACTIONS (3)
  - INHIBITORY DRUG INTERACTION [None]
  - INTERNATIONAL NORMALISED RATIO DECREASED [None]
  - PULMONARY HYPERTENSION [None]
